FAERS Safety Report 11175624 (Version 1)
Quarter: 2015Q2

REPORT INFORMATION
  Report Type: Report from Study
  Country: FR (occurrence: FR)
  Receive Date: 20150609
  Receipt Date: 20150609
  Transmission Date: 20150821
  Serious: Yes (Hospitalization, Other)
  Sender: FDA-Public Use
  Company Number: FR-GLAXOSMITHKLINE-FR2015GSK079261

PATIENT
  Age: 52 Year
  Sex: Male

DRUGS (6)
  1. COVERSYL [Concomitant]
     Active Substance: PERINDOPRIL
  2. TENORMIN [Concomitant]
     Active Substance: ATENOLOL
  3. OMEGA-3-ACID ETHYL ESTERS. [Suspect]
     Active Substance: OMEGA-3-ACID ETHYL ESTERS
     Indication: ISCHAEMIC HEART DISEASE PROPHYLAXIS
     Dosage: UNK
     Route: 048
     Dates: start: 20070118
  4. TAHOR [Concomitant]
     Active Substance: ATORVASTATIN CALCIUM
  5. KARDEGIC [Concomitant]
     Active Substance: ASPIRIN LYSINE
  6. PLAVIX [Concomitant]
     Active Substance: CLOPIDOGREL BISULFATE

REACTIONS (1)
  - Appendicitis [Unknown]

NARRATIVE: CASE EVENT DATE: 20080915
